FAERS Safety Report 19744801 (Version 1)
Quarter: 2021Q3

REPORT INFORMATION
  Report Type: Spontaneous
  Country: DE (occurrence: DE)
  Receive Date: 20210825
  Receipt Date: 20210825
  Transmission Date: 20211014
  Serious: Yes (Hospitalization)
  Sender: FDA-Public Use
  Company Number: DE-MYLANLABS-2021M1054377

PATIENT
  Age: 61 Year
  Sex: Male
  Weight: 72 kg

DRUGS (6)
  1. PARACETAMOL [Suspect]
     Active Substance: ACETAMINOPHEN
     Indication: PRODUCT USED FOR UNKNOWN INDICATION
     Dosage: 500 MILLIGRAM, TID (500 MG, 2?2?2?0, TABLETTEN)
     Route: 048
  2. MESALAZIN [Concomitant]
     Active Substance: MESALAMINE
     Dosage: 1.5 MILLIGRAM, TID (1.5 MG, 1?1?1?0, TABLETTEN)
     Route: 048
  3. CLOPIDOGREL [Concomitant]
     Active Substance: CLOPIDOGREL BISULFATE
     Dosage: 75 MILLIGRAM, QD (75 MG, 1?0?0?0, TABLETTEN)
     Route: 048
  4. FERRO SANOL COMP                   /06417301/ [Concomitant]
     Dosage: 30/0.5/2.5 MG/?G, 1?0?0?0, KAPSELN
     Route: 048
  5. ATORVASTATIN [Concomitant]
     Active Substance: ATORVASTATIN
     Dosage: 20 MILLIGRAM, QD (20 MG, 0?0?1?0, TABLETTEN)
     Route: 048
  6. PANTOPRAZOLE [Concomitant]
     Active Substance: PANTOPRAZOLE
     Dosage: 40 MILLIGRAM, QD (40 MG, 0?0?1?0, TABLETTEN)
     Route: 048

REACTIONS (5)
  - Pain in extremity [Unknown]
  - Headache [Unknown]
  - Musculoskeletal pain [Unknown]
  - Haematochezia [Unknown]
  - Arthralgia [Unknown]
